FAERS Safety Report 5383501-1 (Version None)
Quarter: 2007Q3

REPORT INFORMATION
  Report Type: 
  Country: None (occurrence: None)
  Receive Date: 20070706
  Receipt Date: 20070629
  Transmission Date: 20080115
  Serious: Yes (Death, Life-Threatening, Hospitalization)
  Sender: FDA-Public Use
  Company Number: 430002E07BEL

PATIENT
  Age: 74 Year
  Sex: Male

DRUGS (4)
  1. NOVANTRONE [Suspect]
     Dosage: 12.6, UNKNOWN
     Dates: start: 20060612, end: 20060616
  2. CYTARABINE [Suspect]
     Dosage: 180, UNKNOWN
     Dates: start: 20060612, end: 20060618
  3. ETOPOSIDE [Suspect]
     Dosage: 180, UNKNOWN
     Dates: start: 20060612, end: 20060614
  4. GEMTUZUMAB OZOGAMICIN [Concomitant]

REACTIONS (3)
  - HEPATITIS TOXIC [None]
  - PNEUMONITIS [None]
  - RESPIRATORY FAILURE [None]
